FAERS Safety Report 11665077 (Version 1)
Quarter: 2015Q4

REPORT INFORMATION
  Report Type: Spontaneous
  Country: US (occurrence: US)
  Receive Date: 20151027
  Receipt Date: 20151027
  Transmission Date: 20160304
  Serious: Yes (Other)
  Sender: FDA-Public Use
  Company Number: US-NPS_PHARMACEUTICALS-002637

PATIENT
  Age: 41 Year
  Sex: Female
  Weight: 61 kg

DRUGS (9)
  1. CALCITRIOL. [Concomitant]
     Active Substance: CALCITRIOL
     Dosage: DF
  2. NATPARA (PARATHYROID HORMONE) [Suspect]
     Active Substance: PARATHYROID HORMONE
     Indication: HYPOPARATHYROIDISM
     Dosage: 2 DOSES
     Route: 058
     Dates: start: 20151012, end: 20151013
  3. CALCIUM ACETATE. [Concomitant]
     Active Substance: CALCIUM ACETATE
     Dosage: DF
  4. OMEPRAZOLE. [Concomitant]
     Active Substance: OMEPRAZOLE
     Dosage: DF
  5. LEVOTHYROXINE. [Concomitant]
     Active Substance: LEVOTHYROXINE
     Dosage: DF
  6. CALCIUM CARBONATE. [Concomitant]
     Active Substance: CALCIUM CARBONATE
     Dosage: DF
  7. PHENERGAN [Concomitant]
     Active Substance: PROMETHAZINE HYDROCHLORIDE
     Dosage: DF
  8. CITRACAL WITH VITAMIN D [Concomitant]
     Dosage: DF
  9. ZOFRAN [Concomitant]
     Active Substance: ONDANSETRON HYDROCHLORIDE
     Dosage: DF

REACTIONS (12)
  - Arthralgia [Not Recovered/Not Resolved]
  - Flushing [Unknown]
  - Myalgia [Not Recovered/Not Resolved]
  - Palpitations [Unknown]
  - Musculoskeletal stiffness [Recovered/Resolved]
  - Quadriplegia [Recovered/Resolved]
  - Headache [Not Recovered/Not Resolved]
  - Paralysis [Recovered/Resolved]
  - Nausea [Unknown]
  - Hypoaesthesia oral [Unknown]
  - Coma [Recovered/Resolved]
  - Unresponsive to stimuli [Recovered/Resolved]

NARRATIVE: CASE EVENT DATE: 201510
